FAERS Safety Report 6922480-X (Version None)
Quarter: 2010Q3

REPORT INFORMATION
  Report Type: 
  Country: None (occurrence: None)
  Receive Date: 20100813
  Receipt Date: 20100804
  Transmission Date: 20110219
  Serious: Yes (Other)
  Sender: FDA-Public Use
  Company Number: US-BAYER-201022226NA

PATIENT
  Age: 65 Year
  Sex: Female
  Weight: 79 kg

DRUGS (29)
  1. MAGNEVIST [Suspect]
     Indication: NUCLEAR MAGNETIC RESONANCE IMAGING
  2. OMNISCAN [Suspect]
     Indication: NUCLEAR MAGNETIC RESONANCE IMAGING
  3. OPTIMARK [Suspect]
     Indication: NUCLEAR MAGNETIC RESONANCE IMAGING
  4. MULTIHANCE [Suspect]
     Indication: NUCLEAR MAGNETIC RESONANCE IMAGING
  5. PROHANCE [Suspect]
     Indication: NUCLEAR MAGNETIC RESONANCE IMAGING
  6. UNKNOWN GBCA [Suspect]
     Dates: start: 20060522, end: 20060522
  7. PROGRAF [Concomitant]
     Dosage: 1 MG EVERY 12 HRS
     Route: 048
  8. PREDNISONE [Concomitant]
     Dosage: 5 MG EVERY MORNING
     Route: 048
  9. CELLCEPT [Concomitant]
     Dosage: 500 MG EVERY 6 HRS
  10. LIPITOR [Concomitant]
     Dosage: 10 MG QHS
     Route: 048
  11. METOPROLOL TARTRATE [Concomitant]
  12. ALLOPURINOL [Concomitant]
  13. PROTONIX [Concomitant]
  14. RENAGEL [Concomitant]
     Dosage: 800 MG TWICE WITH MEALS
  15. NEPHRO CAPS [Concomitant]
  16. NEURONTIN [Concomitant]
  17. CARDIZAM CD [Concomitant]
  18. I-131 SODIUM IODIDE [Concomitant]
  19. LABETALOL HCL [Concomitant]
  20. HYTRIN [Concomitant]
  21. ASPIRIN [Concomitant]
  22. SYNTHROID [Concomitant]
  23. SODIUM BICARBONATE [Concomitant]
  24. MIDODRINE HYDROCHLORIDE [Concomitant]
     Dosage: 1 HOUR PRIOR TO DIALYSIS
  25. SENSIPAR [Concomitant]
  26. COUMADIN [Concomitant]
  27. EPOGEN [Concomitant]
     Dosage: AT DIALYSIS
  28. LEVATOL [Concomitant]
  29. RENAL CAPS [Concomitant]

REACTIONS (9)
  - MELANOCYTIC NAEVUS [None]
  - NEPHROGENIC SYSTEMIC FIBROSIS [None]
  - OEDEMA PERIPHERAL [None]
  - PAIN [None]
  - SKIN EXFOLIATION [None]
  - SKIN HYPERPIGMENTATION [None]
  - SKIN HYPERTROPHY [None]
  - SKIN INDURATION [None]
  - SKIN TIGHTNESS [None]
